FAERS Safety Report 16838060 (Version 1)
Quarter: 2019Q3

REPORT INFORMATION
  Report Type: Report from Study
  Country: None (occurrence: HU)
  Receive Date: 20190923
  Receipt Date: 20190923
  Transmission Date: 20191005
  Serious: Yes (Hospitalization)
  Sender: FDA-Public Use
  Company Number: HU-ABBVIE-16P-076-1738254-00

PATIENT
  Age: 74 Year
  Sex: Male
  Weight: 80 kg

DRUGS (11)
  1. DUODOPA [Suspect]
     Active Substance: CARBIDOPA\LEVODOPA
     Dosage: CONTINUOUS DOSE DURING THE DAY 6.5 ML/H; CONTINUOUS DOSE DURING THE NIGHT 4 ML/H;
     Route: 050
     Dates: start: 201504, end: 20161025
  2. DUODOPA [Suspect]
     Active Substance: CARBIDOPA\LEVODOPA
     Indication: PARKINSON^S DISEASE
     Dosage: MORNING DOSE 8 ML; CONTINUOUS DOSE 6 ML/H; EXTRA DOSE 2 ML; EXTRA DOSE INTERVAL 1 H
     Route: 050
     Dates: start: 20150307, end: 201504
  3. ASACTAL [Concomitant]
     Active Substance: ASPIRIN
     Indication: ARTERIOSCLEROSIS
     Route: 048
     Dates: end: 20161026
  4. DUODOPA [Suspect]
     Active Substance: CARBIDOPA\LEVODOPA
     Dosage: CONTINUOUS DOSE DURING THE DAY 6.5 ML/H; CONTINUOUS DOSE DURING THE NIGHT 4 ML/H;
     Route: 050
     Dates: start: 20161110
  5. DALNESSA [Concomitant]
     Indication: HYPERTONIA
     Dosage: 4/5 MG A TIME
     Dates: end: 20161025
  6. BISOBLOCK [Concomitant]
     Active Substance: BISOPROLOL FUMARATE
     Indication: HYPERTONIA
     Route: 048
  7. COVEREX AS [Concomitant]
     Active Substance: PERINDOPRIL ARGININE
     Indication: HYPERTONIA
     Dosage: EVENINGS
     Route: 048
     Dates: start: 20161025
  8. FURON [Concomitant]
     Active Substance: FUROSEMIDE
     Indication: HYPERTONIA
     Route: 048
     Dates: start: 20161026
  9. ASASANTIN [Concomitant]
     Active Substance: ASPIRIN\DIPYRIDAMOLE
     Indication: ARTERIOSCLEROSIS
     Route: 048
     Dates: start: 20161026
  10. KVENTIAX [Concomitant]
     Active Substance: QUETIAPINE FUMARATE
     Indication: PSYCHOTIC DISORDER
     Dosage: 12.5MG A TIME AS NEDED
     Route: 048
     Dates: start: 20161017
  11. KALIUM-R [Concomitant]
     Indication: MINERAL SUPPLEMENTATION
     Route: 048
     Dates: start: 20161026

REACTIONS (15)
  - Sensory loss [Not Recovered/Not Resolved]
  - Pain in extremity [Not Recovered/Not Resolved]
  - Hallucination [Not Recovered/Not Resolved]
  - Fall [Unknown]
  - Circumcision [Recovered/Resolved]
  - Balanoposthitis [Recovered/Resolved]
  - Dementia [Not Recovered/Not Resolved]
  - Chronic inflammatory demyelinating polyradiculoneuropathy [Recovering/Resolving]
  - General physical health deterioration [Not Recovered/Not Resolved]
  - Sensory loss [Unknown]
  - Pain in extremity [Not Recovered/Not Resolved]
  - Muscular weakness [Unknown]
  - Paraesthesia [Unknown]
  - Nocturia [Not Recovered/Not Resolved]
  - Gait disturbance [Unknown]

NARRATIVE: CASE EVENT DATE: 201606
